FAERS Safety Report 15525655 (Version 1)
Quarter: 2018Q4

REPORT INFORMATION
  Report Type: Spontaneous
  Country: DE (occurrence: DE)
  Receive Date: 20181018
  Receipt Date: 20181018
  Transmission Date: 20190205
  Serious: Yes (Other)
  Sender: FDA-Public Use
  Company Number: DE-MYLANLABS-2018M1077620

PATIENT
  Age: 27 Year
  Sex: Female
  Weight: 73 kg

DRUGS (1)
  1. DYMISTA [Suspect]
     Active Substance: AZELASTINE HYDROCHLORIDE\FLUTICASONE PROPIONATE
     Indication: MITE ALLERGY
     Dosage: TWICE DAILY ONE PUFF PER NOSTRIL
     Route: 045

REACTIONS (8)
  - Angioedema [Unknown]
  - Lip swelling [Unknown]
  - Blepharitis [Unknown]
  - Lacrimation increased [Unknown]
  - Fixed eruption [Unknown]
  - Skin exfoliation [Unknown]
  - Swelling of eyelid [Unknown]
  - Rash macular [Unknown]

NARRATIVE: CASE EVENT DATE: 20180204
